FAERS Safety Report 20098139 (Version 2)
Quarter: 2021Q4

REPORT INFORMATION
  Report Type: Spontaneous
  Country: RU (occurrence: RU)
  Receive Date: 20211122
  Receipt Date: 20211126
  Transmission Date: 20220303
  Serious: Yes (Other)
  Sender: FDA-Public Use
  Company Number: RU-009507513-2111RUS007368

PATIENT
  Age: 5 Decade
  Sex: Female

DRUGS (7)
  1. DORZOLAMIDE HYDROCHLORIDE [Suspect]
     Active Substance: DORZOLAMIDE HYDROCHLORIDE
     Indication: Ocular hypertension
     Dosage: 1 DROP 2 TIMES DAILY (2 IN 1 D)
     Route: 047
     Dates: start: 20210808, end: 20210921
  2. INSULIN NOS [Concomitant]
     Active Substance: INSULIN NOS
  3. LANTUS [Concomitant]
     Active Substance: INSULIN GLARGINE
  4. HUMALOG [Concomitant]
     Active Substance: INSULIN LISPRO
  5. METFORMIN [Concomitant]
     Active Substance: METFORMIN HYDROCHLORIDE
  6. DAPAGLIFLOZIN [Concomitant]
     Active Substance: DAPAGLIFLOZIN
  7. HYDROCHLOROTHIAZIDE\LOSARTAN POTASSIUM [Concomitant]
     Active Substance: HYDROCHLOROTHIAZIDE\LOSARTAN POTASSIUM
     Dosage: 50 MILLIGRAM

REACTIONS (4)
  - Intraocular pressure increased [Recovered/Resolved]
  - Drug ineffective [Unknown]
  - Prescribed underdose [Unknown]
  - Off label use [Recovered/Resolved]

NARRATIVE: CASE EVENT DATE: 20210801
